FAERS Safety Report 23555880 (Version 3)
Quarter: 2024Q1

REPORT INFORMATION
  Report Type: Spontaneous
  Country: US (occurrence: US)
  Receive Date: 20240222
  Receipt Date: 20240307
  Transmission Date: 20240410
  Serious: No
  Sender: FDA-Public Use
  Company Number: US-ELI_LILLY_AND_COMPANY-US202402012281

PATIENT
  Age: 64 Year
  Sex: Female

DRUGS (3)
  1. TALTZ [Suspect]
     Active Substance: IXEKIZUMAB
     Indication: Psoriatic arthropathy
     Dosage: 160 MG, OTHER (LOADING DOSE)
     Route: 058
     Dates: start: 20240131
  2. TALTZ [Suspect]
     Active Substance: IXEKIZUMAB
     Indication: Arthritis
     Dosage: 80 MG, UNKNOWN
     Route: 058
     Dates: start: 20240217
  3. TALTZ [Suspect]
     Active Substance: IXEKIZUMAB
     Indication: Psoriasis
     Dosage: 80 MG, UNKNOWN
     Route: 058

REACTIONS (8)
  - Extra dose administered [Unknown]
  - Inappropriate schedule of product administration [Unknown]
  - Injection site dryness [Not Recovered/Not Resolved]
  - Injection site swelling [Recovering/Resolving]
  - Injection site pruritus [Recovering/Resolving]
  - Injection site bruising [Recovered/Resolved]
  - Injection site urticaria [Recovering/Resolving]
  - Injection site erythema [Recovering/Resolving]

NARRATIVE: CASE EVENT DATE: 20240201
